FAERS Safety Report 6007511-6 (Version None)
Quarter: 2008Q4

REPORT INFORMATION
  Report Type: 
  Country: None (occurrence: None)
  Receive Date: 20081217
  Receipt Date: 20080430
  Transmission Date: 20090506
  Serious: No
  Sender: FDA-Public Use
  Company Number: US-ASTRAZENECA-2008UW08975

PATIENT
  Age: 74 Year
  Sex: Female
  Weight: 64.4 kg

DRUGS (10)
  1. CRESTOR [Suspect]
     Indication: BLOOD CHOLESTEROL INCREASED
     Route: 048
     Dates: start: 20080429
  2. IMDUR [Concomitant]
  3. PLAVIX [Concomitant]
  4. NEXIUM [Concomitant]
  5. LISINOPRIL [Concomitant]
  6. ASPIRIN [Concomitant]
     Route: 048
  7. NITROGLYCERIN [Concomitant]
  8. COSOPT [Concomitant]
  9. NORVASC [Concomitant]
  10. SLUVOXAMINE [Concomitant]

REACTIONS (1)
  - CHEST PAIN [None]
